FAERS Safety Report 22237321 (Version 1)
Quarter: 2023Q2

REPORT INFORMATION
  Report Type: Spontaneous
  Country: FR (occurrence: FR)
  Receive Date: 20230421
  Receipt Date: 20230421
  Transmission Date: 20230721
  Serious: Yes (Other)
  Sender: FDA-Public Use
  Company Number: None

PATIENT
  Age: 77 Year
  Sex: Female

DRUGS (1)
  1. NIVOLUMAB [Suspect]
     Active Substance: NIVOLUMAB
     Indication: Monoclonal antibody immunoconjugate therapy
     Route: 042
     Dates: start: 20221028

REACTIONS (5)
  - Troponin increased [Unknown]
  - Blood creatine phosphokinase increased [Unknown]
  - Myalgia [Recovering/Resolving]
  - Diplopia [Recovering/Resolving]
  - Off label use [Unknown]

NARRATIVE: CASE EVENT DATE: 20221001
